FAERS Safety Report 9425771 (Version 1)
Quarter: 2013Q3

REPORT INFORMATION
  Report Type: Spontaneous
  Country: US (occurrence: US)
  Receive Date: 20130729
  Receipt Date: 20130729
  Transmission Date: 20140515
  Serious: Yes (Death, Hospitalization)
  Sender: FDA-Public Use
  Company Number: US-FRI-1000046978

PATIENT
  Age: 92 Year
  Sex: Male

DRUGS (1)
  1. LINZESS [Suspect]

REACTIONS (1)
  - Gastrointestinal obstruction [Fatal]
